FAERS Safety Report 6697718-7 (Version None)
Quarter: 2010Q2

REPORT INFORMATION
  Report Type: 
  Country: None (occurrence: None)
  Receive Date: 20100423
  Receipt Date: 20100408
  Transmission Date: 20101027
  Serious: Yes (Death, Hospitalization)
  Sender: FDA-Public Use
  Company Number: M1001835

PATIENT
  Age: 77 Year
  Sex: Male

DRUGS (6)
  1. AMIODARONE (MFR UNK) (AMIODARONE) [Suspect]
     Indication: VENTRICULAR TACHYCARDIA
     Dosage: 400 MG, BID, ORAL
     Route: 048
     Dates: start: 20100315, end: 20100322
  2. UNSPECIFIED ACE INHIBITOR (ACE INHIBITOR NOS) [Concomitant]
  3. UNSPECIFIED BETA-BLOCKER(BETA BLOCKER AGENTS) [Concomitant]
  4. UNSPECIFIED CHOLESTEROL MEDICATION [Concomitant]
  5. UNSPECIFIED INHALERS [Concomitant]
  6. COMBIVENT (SALBUTAMOL, IPRATROPIUM BROMIDE) [Concomitant]

REACTIONS (4)
  - DYSPNOEA [None]
  - HYPOTENSION [None]
  - SEPSIS [None]
  - THROMBOSIS [None]
